FAERS Safety Report 13660242 (Version 1)
Quarter: 2017Q2

REPORT INFORMATION
  Report Type: Spontaneous
  Country: US (occurrence: US)
  Receive Date: 20170615
  Receipt Date: 20170615
  Transmission Date: 20170830
  Serious: Yes (Other)
  Sender: FDA-Public Use
  Company Number: None

PATIENT
  Age: 28 Year
  Sex: Male

DRUGS (1)
  1. DUPIXENT [Suspect]
     Active Substance: DUPILUMAB
     Indication: DERMATITIS ATOPIC
     Dosage: INJECT 2 SYRINGES (600 ON DAY 1 SUBCUTANEOUSLY
     Route: 058
     Dates: start: 20170607

REACTIONS (1)
  - Hot flush [None]

NARRATIVE: CASE EVENT DATE: 20170607
